FAERS Safety Report 13397277 (Version 1)
Quarter: 2017Q2

REPORT INFORMATION
  Report Type: Spontaneous
  Country: SE (occurrence: SE)
  Receive Date: 20170403
  Receipt Date: 20170403
  Transmission Date: 20170830
  Serious: Yes (Other)
  Sender: FDA-Public Use
  Company Number: SE-BAYER-2017-056429

PATIENT
  Age: 18 Year
  Sex: Female

DRUGS (1)
  1. JAYDESS [Suspect]
     Active Substance: LEVONORGESTREL
     Dosage: 14 MCG/24HR, UNK
     Route: 015
     Dates: start: 20160905, end: 20161107

REACTIONS (5)
  - Depressed mood [Recovered/Resolved with Sequelae]
  - Vaginal haemorrhage [Recovered/Resolved with Sequelae]
  - Panic attack [Recovered/Resolved with Sequelae]
  - Migraine [Recovered/Resolved with Sequelae]
  - Pain [Recovered/Resolved with Sequelae]

NARRATIVE: CASE EVENT DATE: 20160905
